FAERS Safety Report 4265769-8 (Version None)
Quarter: 2004Q1

REPORT INFORMATION
  Report Type: 
  Country: None (occurrence: None)
  Receive Date: 20040106
  Receipt Date: 20031224
  Transmission Date: 20041129
  Serious: Yes (Death, Hospitalization)
  Sender: FDA-Public Use
  Company Number: US-JNJFOC-20031102549

PATIENT
  Age: 44 Year
  Sex: Female
  Weight: 151.955 kg

DRUGS (4)
  1. REMICADE [Suspect]
     Indication: RHEUMATOID ARTHRITIS
     Dosage: 5 VIALS; 5 VIALS; 5 VIALS
     Dates: start: 20030825
  2. REMICADE [Suspect]
     Indication: RHEUMATOID ARTHRITIS
     Dosage: 5 VIALS; 5 VIALS; 5 VIALS
     Dates: start: 20030908
  3. REMICADE [Suspect]
     Indication: RHEUMATOID ARTHRITIS
     Dosage: 5 VIALS; 5 VIALS; 5 VIALS
     Dates: start: 20031110
  4. METHOTREXATE SODIUM [Concomitant]

REACTIONS (18)
  - ANAPHYLACTIC SHOCK [None]
  - CARDIAC ARREST [None]
  - CHEST DISCOMFORT [None]
  - COMA [None]
  - DISSEMINATED INTRAVASCULAR COAGULATION [None]
  - GENERAL PHYSICAL HEALTH DETERIORATION [None]
  - HYPOTENSION [None]
  - INFUSION SITE BURNING [None]
  - LOSS OF CONSCIOUSNESS [None]
  - MULTI-ORGAN DISORDER [None]
  - MYOCARDIAL INFARCTION [None]
  - OEDEMA PERIPHERAL [None]
  - PARAESTHESIA [None]
  - PRURITUS [None]
  - PULSE ABSENT [None]
  - RESPIRATORY ARREST [None]
  - SWELLING FACE [None]
  - VENTRICULAR TACHYCARDIA [None]
